FAERS Safety Report 18853968 (Version 11)
Quarter: 2025Q1

REPORT INFORMATION
  Report Type: Spontaneous
  Country: US (occurrence: US)
  Receive Date: 20210205
  Receipt Date: 20250317
  Transmission Date: 20250408
  Serious: Yes (Other)
  Sender: PFIZER
  Company Number: US-PFIZER INC-2021111513

PATIENT
  Age: 64 Year
  Sex: Female
  Weight: 86.7 kg

DRUGS (3)
  1. IBRANCE [Suspect]
     Active Substance: PALBOCICLIB
     Indication: Metastatic neoplasm
     Route: 048
     Dates: start: 20190120
  2. IBRANCE [Suspect]
     Active Substance: PALBOCICLIB
     Route: 048
     Dates: start: 20220225
  3. IBRANCE [Suspect]
     Active Substance: PALBOCICLIB
     Route: 048

REACTIONS (8)
  - Weight decreased [Unknown]
  - Sciatica [Unknown]
  - Taste disorder [Unknown]
  - Headache [Unknown]
  - Alopecia [Unknown]
  - Fatigue [Unknown]
  - Anxiety [Unknown]
  - White blood cell count decreased [Unknown]

NARRATIVE: CASE EVENT DATE: 20240916
